FAERS Safety Report 13593560 (Version 1)
Quarter: 2017Q2

REPORT INFORMATION
  Report Type: Spontaneous
  Country: US (occurrence: US)
  Receive Date: 20170530
  Receipt Date: 20170530
  Transmission Date: 20170830
  Serious: No
  Sender: FDA-Public Use
  Company Number: US-CELGENEUS-USA-20170505039

PATIENT
  Sex: Female

DRUGS (1)
  1. POMALYST [Suspect]
     Active Substance: POMALIDOMIDE
     Indication: PLASMA CELL MYELOMA
     Dosage: 3 MILLIGRAM
     Route: 048
     Dates: start: 20170420, end: 20170509

REACTIONS (4)
  - Diarrhoea [Unknown]
  - Neuropathy peripheral [Unknown]
  - Dry eye [Unknown]
  - Tremor [Unknown]

NARRATIVE: CASE EVENT DATE: 2017
